FAERS Safety Report 25881640 (Version 1)
Quarter: 2025Q4

REPORT INFORMATION
  Report Type: Spontaneous
  Country: US (occurrence: US)
  Receive Date: 20251005
  Receipt Date: 20251005
  Transmission Date: 20260118
  Serious: No
  Sender: GLENMARK
  Company Number: US-GLENMARK PHARMACEUTICALS-2024GMK093135

PATIENT

DRUGS (2)
  1. ADAPALENE [Suspect]
     Active Substance: ADAPALENE
     Indication: Skin texture abnormal
     Dosage: UNK
     Route: 065
  2. AQUAPHOR [Concomitant]
     Active Substance: PETROLATUM
     Indication: Prophylaxis
     Dosage: UNK (APPLY AQUAPHOR ON EYELIDS AND UNDER EYE)
     Route: 065

REACTIONS (4)
  - Eyelid irritation [Unknown]
  - Ill-defined disorder [Unknown]
  - Product use in unapproved indication [Unknown]
  - Product physical consistency issue [Unknown]
